FAERS Safety Report 22751805 (Version 2)
Quarter: 2024Q2

REPORT INFORMATION
  Report Type: Spontaneous
  Country: US (occurrence: US)
  Receive Date: 20230726
  Receipt Date: 20240528
  Transmission Date: 20240715
  Serious: No
  Sender: FDA-Public Use
  Company Number: US-BRACCO-2023US02156

PATIENT
  Age: 67 Year
  Sex: Female

DRUGS (1)
  1. E-Z-PAQUE [Suspect]
     Active Substance: BARIUM SULFATE
     Indication: Oesophagram
     Dosage: UNK UNK, SINGLE, HALF OF 355 ML BOTTLE
     Route: 048
     Dates: start: 20230502, end: 20230502

REACTIONS (1)
  - Burning sensation [Recovered/Resolved]

NARRATIVE: CASE EVENT DATE: 20230502
